FAERS Safety Report 16388318 (Version 2)
Quarter: 2019Q3

REPORT INFORMATION
  Report Type: Spontaneous
  Country: US (occurrence: US)
  Receive Date: 20190604
  Receipt Date: 20190828
  Transmission Date: 20191004
  Serious: No
  Sender: FDA-Public Use
  Company Number: US-PFIZER INC-2019232679

PATIENT
  Age: 64 Year
  Sex: Female
  Weight: 78.93 kg

DRUGS (6)
  1. CELEBREX [Suspect]
     Active Substance: CELECOXIB
     Indication: POLIOMYELITIS
  2. CELEBREX [Suspect]
     Active Substance: CELECOXIB
     Indication: OSTEOPOROSIS
     Dosage: 200 MG, 2X/DAY
     Route: 048
     Dates: start: 1990
  3. EFFEXOR XR [Concomitant]
     Active Substance: VENLAFAXINE HYDROCHLORIDE
     Dosage: 150 MG, 1X/DAY [150 MG, ONE PILL BY MOUTH IN THE MORNING]
     Route: 048
  4. CELEBREX [Suspect]
     Active Substance: CELECOXIB
     Indication: SCOLIOSIS
  5. CELEBREX [Suspect]
     Active Substance: CELECOXIB
     Indication: OSTEOARTHRITIS
  6. ESTRADIOL. [Concomitant]
     Active Substance: ESTRADIOL
     Dosage: UNK

REACTIONS (6)
  - Pain [Unknown]
  - Body height decreased [Unknown]
  - Condition aggravated [Unknown]
  - Intervertebral disc degeneration [Unknown]
  - Weight decreased [Unknown]
  - Chondropathy [Unknown]
